FAERS Safety Report 22163242 (Version 1)
Quarter: 2023Q2

REPORT INFORMATION
  Report Type: Spontaneous
  Country: JP (occurrence: JP)
  Receive Date: 20230401
  Receipt Date: 20230401
  Transmission Date: 20230722
  Serious: Yes (Hospitalization, Other)
  Sender: FDA-Public Use
  Company Number: JP-UCBJ-CD202302976UCBPHAPROD

PATIENT
  Age: 22 Year
  Sex: Female

DRUGS (7)
  1. LEVETIRACETAM [Suspect]
     Active Substance: LEVETIRACETAM
     Indication: Cortical dysplasia
     Dosage: UNK
     Route: 048
  2. LEVETIRACETAM [Suspect]
     Active Substance: LEVETIRACETAM
     Indication: Off label use
  3. LACOSAMIDE [Suspect]
     Active Substance: LACOSAMIDE
     Indication: Cortical dysplasia
     Dosage: UNK
     Route: 048
  4. LACOSAMIDE [Suspect]
     Active Substance: LACOSAMIDE
     Indication: Off label use
  5. PHENOBARBITAL [Suspect]
     Active Substance: PHENOBARBITAL
     Indication: Cortical dysplasia
     Dosage: UNK
  6. VALPROATE [Concomitant]
     Active Substance: VALPROIC ACID
     Indication: Cortical dysplasia
     Dosage: UNK
  7. LAMOTRIGINE [Concomitant]
     Active Substance: LAMOTRIGINE
     Indication: Cortical dysplasia
     Dosage: UNK

REACTIONS (6)
  - Suicidal ideation [Unknown]
  - Intentional overdose [Unknown]
  - Psychiatric symptom [Recovering/Resolving]
  - Impaired work ability [Unknown]
  - Drug ineffective [Unknown]
  - Off label use [Unknown]
